FAERS Safety Report 15111222 (Version 1)
Quarter: 2018Q3

REPORT INFORMATION
  Report Type: Spontaneous
  Country: US (occurrence: US)
  Receive Date: 20180705
  Receipt Date: 20180705
  Transmission Date: 20181010
  Serious: No
  Sender: FDA-Public Use
  Company Number: US-SA-2018SA179389

PATIENT
  Sex: Male

DRUGS (2)
  1. CEREZYME [Suspect]
     Active Substance: IMIGLUCERASE
     Dosage: 2000 U, QOW
     Route: 041
     Dates: start: 20100410
  2. CEREZYME [Suspect]
     Active Substance: IMIGLUCERASE
     Dosage: 2000 UNK
     Route: 041

REACTIONS (1)
  - Drug dose omission [Unknown]
